FAERS Safety Report 14754003 (Version 5)
Quarter: 2018Q3

REPORT INFORMATION
  Report Type: Report from Study
  Country: US (occurrence: US)
  Receive Date: 20180412
  Receipt Date: 20180816
  Transmission Date: 20181010
  Serious: Yes (Hospitalization)
  Sender: FDA-Public Use
  Company Number: US-ACTELION-A-US2018-170335

PATIENT
  Age: 74 Year
  Sex: Female
  Weight: 56.24 kg

DRUGS (2)
  1. OPSUMIT [Suspect]
     Active Substance: MACITENTAN
     Indication: PULMONARY ARTERIAL HYPERTENSION
     Dosage: 10 MG, QD
     Route: 048
  2. ADCIRCA [Suspect]
     Active Substance: TADALAFIL
     Indication: PULMONARY ARTERIAL HYPERTENSION
     Route: 065

REACTIONS (11)
  - Rhinorrhoea [Unknown]
  - Intestinal obstruction [Unknown]
  - Decreased appetite [Unknown]
  - Intestinal haemorrhage [Unknown]
  - Abdominal discomfort [Unknown]
  - Chest pain [Unknown]
  - Back pain [Unknown]
  - Vomiting [Unknown]
  - Gingival pain [Unknown]
  - Constipation [Unknown]
  - Malaise [Unknown]

NARRATIVE: CASE EVENT DATE: 20180430
